FAERS Safety Report 9978422 (Version 2)
Quarter: 2014Q1

REPORT INFORMATION
  Report Type: Spontaneous
  Country: US (occurrence: US)
  Receive Date: 20140306
  Receipt Date: 20140317
  Transmission Date: 20141002
  Serious: Yes (Life-Threatening, Other)
  Sender: FDA-Public Use
  Company Number: US-ABBVIE-13P-163-1173188-00

PATIENT
  Age: 81 Year
  Sex: Female
  Weight: 90.35 kg

DRUGS (7)
  1. HUMIRA [Suspect]
     Indication: CROHN^S DISEASE
     Route: 058
     Dates: start: 20090331, end: 20131125
  2. MONOPRIL [Concomitant]
     Indication: HYPERTENSION
     Dosage: TABLET CUT IN 1/2
  3. TOPROL [Concomitant]
     Indication: HYPERTENSION
     Dosage: TABLET CUT IN 1/2
  4. COLAZOL [Concomitant]
     Indication: CROHN^S DISEASE
  5. MULTIVITAMIN [Concomitant]
     Indication: PRODUCT USED FOR UNKNOWN INDICATION
  6. OMEPRAZOLE [Concomitant]
     Indication: GASTROOESOPHAGEAL REFLUX DISEASE
  7. IMMODIUM [Concomitant]
     Indication: DIARRHOEA

REACTIONS (3)
  - Mass [Not Recovered/Not Resolved]
  - Non-Hodgkin^s lymphoma unspecified histology indolent stage IV [Unknown]
  - Neck mass [Unknown]
